FAERS Safety Report 24088207 (Version 1)
Quarter: 2024Q3

REPORT INFORMATION
  Report Type: Other
  Country: IN (occurrence: IN)
  Receive Date: 20240715
  Receipt Date: 20240715
  Transmission Date: 20241017
  Serious: Yes (Other)
  Sender: BIONPHARMA
  Company Number: IN-Bion-013434

PATIENT
  Age: 20 Year
  Sex: Male

DRUGS (2)
  1. DEXAMETHASONE [Suspect]
     Active Substance: DEXAMETHASONE
     Indication: Product used for unknown indication
  2. CYPROHEPTADINE [Concomitant]
     Active Substance: CYPROHEPTADINE
     Indication: Product used for unknown indication
     Dosage: IN TWO DIVIDED DOSES

REACTIONS (3)
  - Suicidal ideation [Unknown]
  - Drug abuse [Unknown]
  - Obsessive-compulsive disorder [Recovered/Resolved]
